FAERS Safety Report 6782693-7 (Version None)
Quarter: 2010Q2

REPORT INFORMATION
  Report Type: 
  Country: None (occurrence: None)
  Receive Date: 20100621
  Receipt Date: 20100615
  Transmission Date: 20101027
  Serious: Yes (Hospitalization)
  Sender: FDA-Public Use
  Company Number: PL-AMGEN-QUU419168

PATIENT
  Age: 52 Year

DRUGS (5)
  1. ENBREL [Suspect]
     Indication: RHEUMATOID ARTHRITIS
     Route: 058
     Dates: start: 20080513, end: 20100615
  2. TRITACE [Concomitant]
     Dosage: UNSPECIFIED
     Route: 048
  3. ENCORTON [Concomitant]
     Dosage: UNSPECIFIED
     Route: 048
  4. BISOCARD [Concomitant]
     Dosage: UNSPECIFIED
     Route: 048
  5. DICLOFENAC SODIUM [Concomitant]

REACTIONS (4)
  - CATARACT [None]
  - CONDITION AGGRAVATED [None]
  - ULCERATIVE KERATITIS [None]
  - UVEITIS [None]
